FAERS Safety Report 9426684 (Version 1)
Quarter: 2013Q3

REPORT INFORMATION
  Report Type: Spontaneous
  Country: US (occurrence: US)
  Receive Date: 20130730
  Receipt Date: 20130730
  Transmission Date: 20140515
  Serious: No
  Sender: FDA-Public Use
  Company Number: US-SANOFI-AVENTIS-2012SA056384

PATIENT
  Age: 89 Year
  Sex: Female

DRUGS (4)
  1. AMBIEN [Suspect]
     Indication: PRODUCT USED FOR UNKNOWN INDICATION
     Route: 048
  2. VOLTAREN [Suspect]
     Indication: ARTHRALGIA
     Route: 061
     Dates: start: 20120707, end: 20120707
  3. ASPIRIN [Concomitant]
  4. GAS-X [Concomitant]

REACTIONS (10)
  - Decreased appetite [Not Recovered/Not Resolved]
  - Choking sensation [Recovered/Resolved]
  - Pain in extremity [Recovered/Resolved]
  - Hypertension [Unknown]
  - Chest pain [Recovered/Resolved]
  - Dyspepsia [Recovered/Resolved]
  - Constipation [Unknown]
  - Paraesthesia [Unknown]
  - Abdominal pain upper [Recovered/Resolved]
  - Insomnia [Not Recovered/Not Resolved]
